FAERS Safety Report 9371560 (Version 1)
Quarter: 2013Q2

REPORT INFORMATION
  Report Type: Spontaneous
  Country: JP (occurrence: JP)
  Receive Date: 20130627
  Receipt Date: 20130627
  Transmission Date: 20140414
  Serious: Yes (Life-Threatening, Other)
  Sender: FDA-Public Use
  Company Number: JP-ASTELLAS-2013JP006103

PATIENT
  Age: 85 Year
  Sex: Female
  Weight: 50 kg

DRUGS (17)
  1. BETANIS [Suspect]
     Indication: HYPERTONIC BLADDER
     Dosage: 50 MG, UID/QD
     Route: 048
     Dates: start: 20130418, end: 20130425
  2. VESICARE [Concomitant]
     Indication: HYPERTONIC BLADDER
     Dosage: 5 MG, UID/QD
     Route: 048
     Dates: start: 2009, end: 20130417
  3. AMLODIPINE                         /00972402/ [Concomitant]
     Dosage: 5 MG, UID/QD
     Route: 048
     Dates: start: 2000, end: 20130502
  4. BAYASPIRIN [Concomitant]
     Dosage: 100 MG, UID/QD
     Route: 048
     Dates: start: 2000, end: 20130426
  5. MICARDIS [Concomitant]
     Dosage: 20 MG, UID/QD
     Route: 048
     Dates: start: 2000, end: 20130502
  6. LORATADINE [Concomitant]
     Dosage: 10 MG, UID/QD
     Route: 048
     Dates: end: 20130426
  7. VITANEURIN                         /02035001/ [Concomitant]
     Dosage: 25 MG, TID
     Route: 048
     Dates: end: 20130426
  8. MAGLAX [Concomitant]
     Dosage: 330 MG, TID
     Route: 048
     Dates: end: 20130426
  9. BIOFERMIN                          /01617201/ [Concomitant]
     Dosage: 6 DF, UNKNOWN/D
     Route: 048
     Dates: end: 20130426
  10. LIMARMONE [Concomitant]
     Dosage: 5 UG, TID
     Route: 048
     Dates: start: 2008, end: 20130426
  11. WARFARIN [Concomitant]
     Dosage: 1 MG, BID
     Route: 048
     Dates: end: 20130502
  12. LYRICA [Concomitant]
     Dosage: 75 MG, UID/QD
     Route: 048
     Dates: start: 2012, end: 20130426
  13. FRANDOL [Concomitant]
     Dosage: 40 MG, UID/QD
     Route: 061
     Dates: start: 2000
  14. BONALON [Concomitant]
     Dosage: 35 MG, WEEKLY
     Route: 048
     Dates: end: 20130426
  15. HACHIMIJIO-GAN [Concomitant]
     Dosage: 2.5 G, TID
     Route: 048
     Dates: end: 20130426
  16. RABEPRAZOLE NA [Concomitant]
     Dosage: 10 MG, UID/QD
     Route: 048
     Dates: end: 20130426
  17. THEOPHYLLINE [Concomitant]
     Dosage: 200 MG, UID/QD
     Route: 048

REACTIONS (1)
  - Stevens-Johnson syndrome [Recovering/Resolving]
